FAERS Safety Report 6794523-8 (Version None)
Quarter: 2010Q2

REPORT INFORMATION
  Report Type: 
  Country: None (occurrence: None)
  Receive Date: 20100625
  Receipt Date: 20090915
  Transmission Date: 20101027
  Serious: No
  Sender: FDA-Public Use
  Company Number: A0807430A

PATIENT
  Age: 29 Year
  Sex: Female

DRUGS (2)
  1. VENTOLIN [Suspect]
     Indication: ASTHMA
     Dosage: 1PUFF UNKNOWN
     Route: 055
     Dates: start: 19930101, end: 19940101
  2. TYLENOL-500 [Concomitant]

REACTIONS (5)
  - COLD SWEAT [None]
  - DIZZINESS [None]
  - HYPERHIDROSIS [None]
  - NAUSEA [None]
  - TREMOR [None]
